FAERS Safety Report 17866442 (Version 1)
Quarter: 2020Q2

REPORT INFORMATION
  Report Type: Report from Study
  Country: JP (occurrence: JP)
  Receive Date: 20200605
  Receipt Date: 20200605
  Transmission Date: 20200714
  Serious: Yes (Hospitalization)
  Sender: FDA-Public Use
  Company Number: JP-PFIZER INC-2020219831

PATIENT
  Age: 70 Year
  Sex: Male
  Weight: 56.7 kg

DRUGS (7)
  1. 5-FLUOROURACIL [FLUOROURACIL] [Suspect]
     Active Substance: FLUOROURACIL
     Indication: COLON CANCER
     Dosage: 621.6 MG BOLUS EVERY 2 WEEKS
     Route: 040
     Dates: start: 20171218, end: 20180329
  2. IRINOTECAN HCL [Suspect]
     Active Substance: IRINOTECAN HYDROCHLORIDE
     Indication: COLON CANCER
     Dosage: 279.7 MG INFUSION EVERY 2 WEEKS
     Route: 042
     Dates: start: 20171218, end: 20180329
  3. LOPERAMIDE HYDROCHLORIDE. [Concomitant]
     Active Substance: LOPERAMIDE HYDROCHLORIDE
     Dosage: UNK
     Dates: start: 20171223, end: 20180405
  4. LEUCOVORIN. [Suspect]
     Active Substance: LEUCOVORIN
     Indication: COLON CANCER
     Dosage: 310.8 MG INFUSION EVERY 2 WEEKS
     Route: 042
     Dates: start: 20171218, end: 20180329
  5. 5-FLUOROURACIL [FLUOROURACIL] [Suspect]
     Active Substance: FLUOROURACIL
     Dosage: 3729.6 MG INFUSION EVERY 2 WEEKS
     Route: 042
     Dates: start: 20171218, end: 20180329
  6. BEVACIZUMAB. [Suspect]
     Active Substance: BEVACIZUMAB
     Indication: COLON CANCER
     Dosage: 283.5 MG
     Route: 042
     Dates: start: 20171218, end: 20180329
  7. BBI 608 [Suspect]
     Active Substance: NAPABUCASIN
     Indication: COLON CANCER
     Dosage: 240 MG, 2X/DAY
     Route: 048
     Dates: start: 20171214, end: 20180405

REACTIONS (1)
  - Pneumonitis [Recovered/Resolved]

NARRATIVE: CASE EVENT DATE: 20180405
